FAERS Safety Report 13349135 (Version 1)
Quarter: 2017Q1

REPORT INFORMATION
  Report Type: Spontaneous
  Country: US (occurrence: US)
  Receive Date: 20170320
  Receipt Date: 20170320
  Transmission Date: 20170428
  Serious: No
  Sender: FDA-Public Use
  Company Number: US-009507513-1703USA002281

PATIENT
  Sex: Female

DRUGS (1)
  1. NUVARING [Suspect]
     Active Substance: ETHINYL ESTRADIOL\ETONOGESTREL
     Dosage: WEEKS INSIDE THE VAGINA THEN 1 WEEK BREAK
     Route: 067
     Dates: start: 20170228

REACTIONS (1)
  - Inappropriate schedule of drug administration [Unknown]

NARRATIVE: CASE EVENT DATE: 20170228
